FAERS Safety Report 9824148 (Version 1)
Quarter: 2014Q1

REPORT INFORMATION
  Report Type: Spontaneous
  Country: US (occurrence: US)
  Receive Date: 20140116
  Receipt Date: 20140116
  Transmission Date: 20141002
  Serious: Yes (Hospitalization)
  Sender: FDA-Public Use
  Company Number: US-GLAXOSMITHKLINE-A1055793A

PATIENT
  Age: 54 Year
  Sex: Female

DRUGS (13)
  1. ADVAIR [Suspect]
     Indication: CHRONIC OBSTRUCTIVE PULMONARY DISEASE
     Dosage: 1PUFF TWICE PER DAY
     Route: 055
     Dates: start: 2009
  2. VENTOLIN [Concomitant]
  3. ALBUTEROL NEBULIZER [Concomitant]
  4. FLUTICASONE PROPIONATE [Concomitant]
  5. LORATADINE [Concomitant]
  6. LORATADINE [Concomitant]
  7. HYDROCHLOROTHIAZIDE [Concomitant]
  8. LISINOPRIL [Concomitant]
  9. CIPRO [Concomitant]
  10. LOVASTATIN [Concomitant]
  11. METFORMIN [Concomitant]
  12. PROTONIX [Concomitant]
  13. PROBIOTIC [Concomitant]

REACTIONS (2)
  - Oxygen saturation decreased [Recovering/Resolving]
  - Dyspnoea [Recovering/Resolving]
